FAERS Safety Report 12985031 (Version 1)
Quarter: 2016Q4

REPORT INFORMATION
  Report Type: Spontaneous
  Country: CO (occurrence: CO)
  Receive Date: 20161129
  Receipt Date: 20161129
  Transmission Date: 20170207
  Serious: Yes (Life-Threatening)
  Sender: FDA-Public Use
  Company Number: CO-SA-2016SA214183

PATIENT
  Age: 48 Year
  Sex: Male

DRUGS (9)
  1. OXALIPLATIN. [Suspect]
     Active Substance: OXALIPLATIN
     Route: 042
     Dates: start: 20160420, end: 20160420
  2. FLUOROURACIL. [Concomitant]
     Active Substance: FLUOROURACIL
     Route: 042
     Dates: start: 20160420, end: 20160420
  3. BEVACIZUMAB [Concomitant]
     Active Substance: BEVACIZUMAB
     Route: 042
  4. OXALIPLATIN. [Suspect]
     Active Substance: OXALIPLATIN
     Route: 042
     Dates: start: 20161018, end: 20161018
  5. OXALIPLATIN. [Suspect]
     Active Substance: OXALIPLATIN
     Route: 042
     Dates: start: 20160906, end: 20160906
  6. BEVACIZUMAB [Concomitant]
     Active Substance: BEVACIZUMAB
     Route: 042
     Dates: start: 20160420, end: 20160420
  7. OXALIPLATIN. [Suspect]
     Active Substance: OXALIPLATIN
     Route: 042
     Dates: start: 20160920, end: 20160920
  8. OXALIPLATIN. [Suspect]
     Active Substance: OXALIPLATIN
     Route: 042
     Dates: start: 20161004, end: 20161004
  9. FLUOROURACIL. [Concomitant]
     Active Substance: FLUOROURACIL
     Route: 042

REACTIONS (4)
  - Malaise [Recovered/Resolved]
  - Flushing [Recovered/Resolved]
  - Respiratory distress [Recovered/Resolved]
  - Laryngospasm [Recovered/Resolved]

NARRATIVE: CASE EVENT DATE: 20160906
